FAERS Safety Report 4336466-5 (Version None)
Quarter: 2004Q2

REPORT INFORMATION
  Report Type: 
  Country: None (occurrence: None)
  Receive Date: 20040407
  Receipt Date: 20040322
  Transmission Date: 20050107
  Serious: Yes (Other)
  Sender: FDA-Public Use
  Company Number: DSA_24143_2004

PATIENT
  Sex: Female

DRUGS (1)
  1. ^CARDIZEM LONG ACTING^ [Suspect]
     Indication: HYPERTENSION

REACTIONS (2)
  - GINGIVAL DISORDER [None]
  - TOOTH LOSS [None]
